FAERS Safety Report 18336474 (Version 1)
Quarter: 2020Q4

REPORT INFORMATION
  Report Type: Spontaneous
  Country: DE (occurrence: DE)
  Receive Date: 20201001
  Receipt Date: 20201001
  Transmission Date: 20210113
  Serious: Yes (Life-Threatening, Hospitalization)
  Sender: FDA-Public Use
  Company Number: DE-TEVA-2020-DE-1831940

PATIENT
  Age: 76 Year
  Sex: Male
  Weight: 110 kg

DRUGS (10)
  1. BISOPROLOL [Suspect]
     Active Substance: BISOPROLOL
     Dosage: 5 MILLIGRAM DAILY; 0-0-1-0
     Route: 048
  2. IRBESARTAN. [Concomitant]
     Active Substance: IRBESARTAN
     Dosage: 300 MILLIGRAM DAILY;  1-0-0-0
     Route: 048
  3. EDOXABAN [Concomitant]
     Active Substance: EDOXABAN TOSYLATE
     Dosage: 30 MILLIGRAM DAILY; 1-0-0-0
     Route: 048
  4. BISOPROLOL/HYDROCHLOROTHIAZID [Suspect]
     Active Substance: BISOPROLOL FUMARATE\HYDROCHLOROTHIAZIDE
     Dosage: 1 DOSAGE FORMS DAILY; 5|12.5 MG, 1-0-0-0
     Route: 048
  5. EPLERENON [Suspect]
     Active Substance: EPLERENONE
     Dosage: 25 MILLIGRAM DAILY; 1-0-0-0
     Route: 048
  6. INSULIN GLARGIN [Concomitant]
     Active Substance: INSULIN GLARGINE
     Dosage: NK IE, ACCORDING TO THE SCHEME
     Route: 058
  7. INSULIN ASPART [Concomitant]
     Active Substance: INSULIN ASPART
     Dosage: NK IE, ACCORDING TO THE SCHEME
     Route: 058
  8. DIGITOXIN [Concomitant]
     Active Substance: DIGITOXIN
     Dosage: .07 MILLIGRAM DAILY;  1-0-0-0
     Route: 048
  9. TORASEMID [Suspect]
     Active Substance: TORSEMIDE
     Dosage: 10 MILLIGRAM DAILY;  1-0-0-0
     Route: 048
  10. SIMVASTATIN. [Concomitant]
     Active Substance: SIMVASTATIN
     Dosage: 40 MILLIGRAM DAILY;  0-0-1-0
     Route: 048

REACTIONS (6)
  - Abdominal pain upper [Unknown]
  - Nausea [Unknown]
  - Vomiting [Unknown]
  - Abdominal pain [Unknown]
  - Arrhythmia [Unknown]
  - Diarrhoea [Unknown]
